FAERS Safety Report 15783802 (Version 1)
Quarter: 2019Q1

REPORT INFORMATION
  Report Type: Report from Study
  Country: RU (occurrence: RU)
  Receive Date: 20190102
  Receipt Date: 20190102
  Transmission Date: 20190417
  Serious: Yes (Hospitalization, Other)
  Sender: FDA-Public Use
  Company Number: RU-ASTRAZENECA-2018SF71472

PATIENT
  Age: 60 Year
  Sex: Female
  Weight: 87 kg

DRUGS (6)
  1. BISOPROLOL [Concomitant]
     Active Substance: BISOPROLOL
  2. PERINDOPRIL [Concomitant]
     Active Substance: PERINDOPRIL
  3. CARDIOMAGNYL [Concomitant]
     Active Substance: ASPIRIN\MAGNESIUM HYDROXIDE
  4. ROSUVASTATIN. [Concomitant]
     Active Substance: ROSUVASTATIN
  5. BRILINTA [Suspect]
     Active Substance: TICAGRELOR
     Indication: MYOCARDIAL INFARCTION
     Route: 048
     Dates: start: 201807, end: 201808
  6. VEROSPIRON [Concomitant]
     Active Substance: SPIRONOLACTONE

REACTIONS (4)
  - Asphyxia [Not Recovered/Not Resolved]
  - Chest pain [Recovered/Resolved]
  - Contusion [Recovered/Resolved]
  - Weight increased [Not Recovered/Not Resolved]

NARRATIVE: CASE EVENT DATE: 201807
